FAERS Safety Report 12244672 (Version 1)
Quarter: 2016Q2

REPORT INFORMATION
  Report Type: Spontaneous
  Country: US (occurrence: None)
  Receive Date: 20160406
  Receipt Date: 20160406
  Transmission Date: 20160815
  Serious: Yes (Other)
  Sender: FDA-Public Use
  Company Number: None

PATIENT
  Age: 70 Year
  Sex: Male
  Weight: 79.83 kg

DRUGS (8)
  1. ALER-TEC [Concomitant]
  2. FINASTERIDE 5 MG TAB, 5 MG [Suspect]
     Active Substance: FINASTERIDE
     Indication: PROSTATOMEGALY
     Dosage: 2 TABLETS  ONCE A DAY
     Route: 048
     Dates: start: 20160402, end: 20160404
  3. ATORVASTATIN [Concomitant]
     Active Substance: ATORVASTATIN
  4. TYLE NOL PM [Concomitant]
  5. ENAPRIL [Concomitant]
     Active Substance: ENALAPRIL
  6. MULTIPLE VITAMIN [Concomitant]
     Active Substance: VITAMINS
  7. ZOLPIDEM TARTRATE. [Concomitant]
     Active Substance: ZOLPIDEM TARTRATE
  8. ALLERGY ULTRATAB [Concomitant]

REACTIONS (5)
  - Fatigue [None]
  - Middle insomnia [None]
  - Dyspnoea [None]
  - Chest pain [None]
  - Asthenia [None]

NARRATIVE: CASE EVENT DATE: 20160403
